FAERS Safety Report 6257739-5 (Version None)
Quarter: 2009Q3

REPORT INFORMATION
  Report Type: 
  Country: None (occurrence: None)
  Receive Date: 20090706
  Receipt Date: 20090703
  Transmission Date: 20100115
  Serious: Yes (Death, Hospitalization)
  Sender: FDA-Public Use
  Company Number: PHHY2009IE24010

PATIENT
  Sex: Male

DRUGS (6)
  1. RASILEZ [Suspect]
     Dosage: 300 MG DAILY
  2. ACE INHIBITOR NOS [Concomitant]
  3. ANGIOTENSIN RECEPTOR BLOCKER [Concomitant]
  4. ALDOSTERONE ANTAGONISTS [Concomitant]
  5. RAMIPRIL [Concomitant]
     Indication: HYPERTENSION
     Dosage: 10 MG, QD
  6. LERCANIDIPINE [Concomitant]
     Indication: HYPERTENSION
     Dosage: 20 MG, QD

REACTIONS (7)
  - BLOOD CREATININE INCREASED [None]
  - BLOOD PRESSURE DECREASED [None]
  - DIARRHOEA [None]
  - FLUID INTAKE REDUCED [None]
  - HYPOPHAGIA [None]
  - PNEUMONIA [None]
  - RENAL FAILURE ACUTE [None]
